FAERS Safety Report 7643868-8 (Version None)
Quarter: 2011Q3

REPORT INFORMATION
  Report Type: 
  Country: None (occurrence: None)
  Receive Date: 20110729
  Receipt Date: 20100930
  Transmission Date: 20111222
  Serious: No
  Sender: FDA-Public Use
  Company Number: US-GLAXOSMITHKLINE-A0885097A

PATIENT
  Age: 22 Year
  Sex: Female

DRUGS (2)
  1. UNKNOWN [Concomitant]
  2. IMITREX [Suspect]
     Indication: PRODUCT USED FOR UNKNOWN INDICATION
     Dosage: 25MG UNKNOWN
     Route: 048

REACTIONS (2)
  - FATIGUE [None]
  - DIZZINESS [None]
